FAERS Safety Report 20766361 (Version 1)
Quarter: 2022Q2

REPORT INFORMATION
  Report Type: Spontaneous
  Country: US (occurrence: None)
  Receive Date: 20220428
  Receipt Date: 20220428
  Transmission Date: 20220721
  Serious: No
  Sender: FDA-Public Use
  Company Number: 2022A164332

PATIENT
  Age: 27738 Day
  Sex: Female
  Weight: 68 kg

DRUGS (1)
  1. BYDUREON BCISE [Suspect]
     Active Substance: EXENATIDE
     Indication: Type 2 diabetes mellitus
     Route: 058
     Dates: start: 20211120

REACTIONS (4)
  - Injection site nodule [Unknown]
  - Incorrect dose administered by device [Unknown]
  - Device use issue [Unknown]
  - Device leakage [Unknown]

NARRATIVE: CASE EVENT DATE: 20220423
